FAERS Safety Report 9403497 (Version 2)
Quarter: 2013Q4

REPORT INFORMATION
  Report Type: Spontaneous
  Country: IT (occurrence: IT)
  Receive Date: 20130716
  Receipt Date: 20131210
  Transmission Date: 20140711
  Serious: Yes (Other)
  Sender: FDA-Public Use
  Company Number: IT-MERCK-1307ITA004986

PATIENT
  Age: 73 Year
  Sex: Male
  Weight: 85 kg

DRUGS (4)
  1. PEGINTRON [Suspect]
     Indication: HEPATIC CIRRHOSIS
     Dosage: UNK UNK, QW
     Route: 058
     Dates: start: 20130424, end: 20130522
  2. COPEGUS [Suspect]
     Indication: HEPATIC CIRRHOSIS
     Dosage: 1200 MG DAILY
     Route: 048
     Dates: start: 20130424, end: 20130525
  3. INCIVO [Suspect]
     Indication: HEPATIC CIRRHOSIS
     Dosage: 2250 MG DAILY
     Route: 048
     Dates: start: 20130424, end: 20130525
  4. MICARDIS [Concomitant]
     Indication: HYPERTENSION
     Dosage: UNK
     Route: 048
     Dates: start: 20120101

REACTIONS (1)
  - Syncope [Recovered/Resolved]
